FAERS Safety Report 5720733-4 (Version None)
Quarter: 2008Q2

REPORT INFORMATION
  Report Type: 
  Country: None (occurrence: None)
  Receive Date: 20080424
  Receipt Date: 20080314
  Transmission Date: 20081010
  Serious: Yes (Other)
  Sender: FDA-Public Use
  Company Number: 163-21880-08031079

PATIENT

DRUGS (2)
  1. REVLIMID [Suspect]
     Indication: NEOPLASM
     Dosage: 5, 10, 15, 20, 25, 30, 35 AND 40MG, 21 DAYS ON, 7 DAYS OFF, ORAL
     Route: 048
  2. REVLIMID [Suspect]
     Indication: PROSTATE CANCER
     Dosage: 5, 10, 15, 20, 25, 30, 35 AND 40MG, 21 DAYS ON, 7 DAYS OFF, ORAL
     Route: 048

REACTIONS (5)
  - ARRHYTHMIA [None]
  - EMBOLISM [None]
  - FATIGUE [None]
  - HAEMOLYSIS [None]
  - NEUTROPENIA [None]
